FAERS Safety Report 8988943 (Version 1)
Quarter: 2012Q4

REPORT INFORMATION
  Report Type: 
  Country: ES (occurrence: ES)
  Receive Date: 20121228
  Receipt Date: 20121228
  Transmission Date: 20130627
  Serious: Yes (Death)
  Sender: FDA-Public Use
  Company Number: ES-BAYER-2012-135559

PATIENT
  Age: 86 Year
  Sex: Male

DRUGS (1)
  1. ADIRO 100 MG [Suspect]
     Indication: MYOCARDIAL INFARCTION ACUTE
     Dosage: 100 mg, QD
     Route: 048
     Dates: start: 2011, end: 201204

REACTIONS (1)
  - Cerebral haematoma [Fatal]
